FAERS Safety Report 12131727 (Version 2)
Quarter: 2016Q2

REPORT INFORMATION
  Report Type: Spontaneous
  Country: US (occurrence: US)
  Receive Date: 20160301
  Receipt Date: 20160502
  Transmission Date: 20160815
  Serious: Yes (Other)
  Sender: FDA-Public Use
  Company Number: US-JNJFOC-20160117661

PATIENT
  Age: 46 Year
  Sex: Male
  Weight: 79.38 kg

DRUGS (16)
  1. HUMIRA [Suspect]
     Active Substance: ADALIMUMAB
     Indication: PAIN
     Dosage: INJECTABLE PEN
     Route: 058
     Dates: start: 2013
  2. REMICADE [Suspect]
     Active Substance: INFLIXIMAB
     Indication: PSORIATIC ARTHROPATHY
     Route: 042
     Dates: start: 201112
  3. ENBREL [Suspect]
     Active Substance: ETANERCEPT
     Indication: JOINT SWELLING
     Dosage: INJECTABLE PEN
     Route: 065
     Dates: start: 2011, end: 201206
  4. XELJANZ [Concomitant]
     Active Substance: TOFACITINIB CITRATE
     Route: 065
  5. REMICADE [Suspect]
     Active Substance: INFLIXIMAB
     Indication: JOINT SWELLING
     Route: 042
     Dates: start: 201112
  6. HUMIRA [Suspect]
     Active Substance: ADALIMUMAB
     Indication: JOINT SWELLING
     Dosage: INJECTABLE PEN
     Route: 058
     Dates: start: 2013
  7. METHOTREXATE [Suspect]
     Active Substance: METHOTREXATE
     Indication: IMMUNE SYSTEM DISORDER
     Route: 065
     Dates: start: 2011, end: 2014
  8. ENBREL [Suspect]
     Active Substance: ETANERCEPT
     Indication: PSORIATIC ARTHROPATHY
     Dosage: INJECTABLE PEN
     Route: 065
     Dates: start: 2011, end: 201206
  9. REMICADE [Suspect]
     Active Substance: INFLIXIMAB
     Indication: PAIN
     Route: 042
     Dates: start: 201112
  10. REMICADE [Suspect]
     Active Substance: INFLIXIMAB
     Indication: PSORIATIC ARTHROPATHY
     Dosage: DURATION 2 HOURS
     Route: 042
     Dates: start: 2012, end: 2013
  11. ADVIL [Concomitant]
     Active Substance: IBUPROFEN
     Indication: PAIN
     Dosage: 2 PILLS, BEFORE ENBREL
     Route: 048
  12. TRAMADOL. [Concomitant]
     Active Substance: TRAMADOL
     Indication: PAIN
     Route: 065
     Dates: start: 2011
  13. REMICADE [Suspect]
     Active Substance: INFLIXIMAB
     Indication: PAIN
     Dosage: DURATION 2 HOURS
     Route: 042
     Dates: start: 2012, end: 2013
  14. REMICADE [Suspect]
     Active Substance: INFLIXIMAB
     Indication: JOINT SWELLING
     Dosage: DURATION 2 HOURS
     Route: 042
     Dates: start: 2012, end: 2013
  15. HUMIRA [Suspect]
     Active Substance: ADALIMUMAB
     Indication: PSORIATIC ARTHROPATHY
     Dosage: INJECTABLE PEN
     Route: 058
     Dates: start: 2013
  16. ENBREL [Suspect]
     Active Substance: ETANERCEPT
     Indication: PAIN
     Dosage: INJECTABLE PEN
     Route: 065
     Dates: start: 2011, end: 201206

REACTIONS (8)
  - Immune system disorder [Unknown]
  - Polyarthritis [Not Recovered/Not Resolved]
  - Drug ineffective [Unknown]
  - Blood test abnormal [Unknown]
  - Product use issue [Unknown]
  - Off label use [Unknown]
  - Drug specific antibody present [Unknown]
  - Drug intolerance [Unknown]

NARRATIVE: CASE EVENT DATE: 201112
